FAERS Safety Report 26179260 (Version 2)
Quarter: 2025Q4

REPORT INFORMATION
  Report Type: Report from Study
  Country: US (occurrence: US)
  Receive Date: 20251219
  Receipt Date: 20251224
  Transmission Date: 20260118
  Serious: Yes (Hospitalization, Other)
  Sender: TAKEDA
  Company Number: US-TAKEDA-2025TUS113574

PATIENT
  Sex: Female
  Weight: 63.5 kg

DRUGS (27)
  1. .ALPHA.1-PROTEINASE INHIBITOR HUMAN [Suspect]
     Active Substance: .ALPHA.1-PROTEINASE INHIBITOR HUMAN
     Indication: Alpha-1 antitrypsin deficiency
     Dosage: 60 MILLIGRAM/KILOGRAM, 1/WEEK
  2. .ALPHA.1-PROTEINASE INHIBITOR HUMAN [Suspect]
     Active Substance: .ALPHA.1-PROTEINASE INHIBITOR HUMAN
  3. EPINEPHRINE [Concomitant]
     Active Substance: EPINEPHRINE
     Dosage: UNK
  4. COREG [Concomitant]
     Active Substance: CARVEDILOL
     Dosage: UNK
  5. XANAX [Concomitant]
     Active Substance: ALPRAZOLAM
     Dosage: UNK
  6. PROLIA [Concomitant]
     Active Substance: DENOSUMAB
     Dosage: UNK
  7. MAGNESIUM OXIDE [Concomitant]
     Active Substance: MAGNESIUM OXIDE
     Dosage: UNK
  8. HEPARIN [Concomitant]
     Active Substance: HEPARIN SODIUM
     Dosage: UNK
  9. SODIUM CHLORIDE [Concomitant]
     Active Substance: SODIUM CHLORIDE
     Dosage: UNK
  10. PANTOPRAZOLE SODIUM [Concomitant]
     Active Substance: PANTOPRAZOLE SODIUM
     Dosage: UNK
  11. BREZTRI [Concomitant]
     Active Substance: BUDESONIDE\FORMOTEROL\GLYCOPYRROLATE
     Dosage: UNK
  12. VITAMINS [Concomitant]
     Active Substance: VITAMINS
     Dosage: UNK
  13. Glucosamine Chondroitin with vitamin D3 extra strength Premium Formula [Concomitant]
     Dosage: UNK
  14. DOXYCYCLINE HYCLATE [Concomitant]
     Active Substance: DOXYCYCLINE HYCLATE
     Dosage: UNK
  15. ALBUTEROL SULFATE [Concomitant]
     Active Substance: ALBUTEROL SULFATE
     Dosage: UNK
  16. TIMOLOL [Concomitant]
     Active Substance: TIMOLOL
     Dosage: UNK
  17. FLUCELVAX NOS [Concomitant]
     Active Substance: INFLUENZA A VIRUS A/BRISBANE/10/2010 (H1N1) ANTIGEN (MDCK CELL DERIVED, PROPIOLACTONE INACTIVATED)\I
     Dosage: UNK
  18. DICLOFENAC SODIUM [Concomitant]
     Active Substance: DICLOFENAC SODIUM
     Dosage: UNK
  19. LISINOPRIL [Concomitant]
     Active Substance: LISINOPRIL
     Dosage: UNK
  20. FLUTICASONE PROPIONATE [Concomitant]
     Active Substance: FLUTICASONE PROPIONATE
     Dosage: UNK
  21. FAMOTIDINE [Concomitant]
     Active Substance: FAMOTIDINE
     Dosage: UNK
  22. LATANOPROST [Concomitant]
     Active Substance: LATANOPROST
     Dosage: UNK
  23. Lmx [Concomitant]
     Dosage: UNK
  24. DIPHENHYDRAMINE HYDROCHLORIDE [Concomitant]
     Active Substance: DIPHENHYDRAMINE HYDROCHLORIDE
     Dosage: UNK
  25. ACETAMINOPHEN [Concomitant]
     Active Substance: ACETAMINOPHEN
     Dosage: UNK
  26. ALPRAZOLAM [Concomitant]
     Active Substance: ALPRAZOLAM
     Dosage: UNK
  27. LORATADINE [Concomitant]
     Active Substance: LORATADINE
     Dosage: UNK

REACTIONS (3)
  - Syncope [Unknown]
  - Emphysema [Unknown]
  - Anxiety [Unknown]
